FAERS Safety Report 4577901-7 (Version None)
Quarter: 2005Q1

REPORT INFORMATION
  Report Type: 
  Country: None (occurrence: None)
  Receive Date: 20050127
  Receipt Date: 20040830
  Transmission Date: 20050727
  Serious: No
  Sender: FDA-Public Use
  Company Number: USA040876907

PATIENT
  Age: 6 Year
  Sex: Male
  Weight: 20 kg

DRUGS (1)
  1. STRATTERA [Suspect]
     Indication: ATTENTION DEFICIT/HYPERACTIVITY DISORDER
     Dosage: 18 MG/L DAY
     Dates: start: 20040301

REACTIONS (4)
  - AGGRESSION [None]
  - ANGER [None]
  - IMPULSE-CONTROL DISORDER [None]
  - PSYCHOMOTOR HYPERACTIVITY [None]
